FAERS Safety Report 7387366-8 (Version None)
Quarter: 2011Q1

REPORT INFORMATION
  Report Type: 
  Country: None (occurrence: None)
  Receive Date: 20110331
  Receipt Date: 20110318
  Transmission Date: 20110831
  Serious: Yes (Hospitalization)
  Sender: FDA-Public Use
  Company Number: PHHY2011DE23111

PATIENT
  Sex: Male
  Weight: 81 kg

DRUGS (1)
  1. AFINITOR [Suspect]
     Indication: RENAL CELL CARCINOMA
     Dosage: 10 MG, DAILY
     Route: 048
     Dates: start: 20110217, end: 20110228

REACTIONS (3)
  - GASTRIC ULCER [None]
  - GASTROINTESTINAL ULCER [None]
  - DUODENAL ULCER [None]
